FAERS Safety Report 9394306 (Version 3)
Quarter: 2013Q3

REPORT INFORMATION
  Report Type: Spontaneous
  Country: BE (occurrence: BE)
  Receive Date: 20130711
  Receipt Date: 20130916
  Transmission Date: 20140515
  Serious: Yes (Disabling, Other)
  Sender: FDA-Public Use
  Company Number: BE-ROCHE-1247128

PATIENT
  Age: 55 Year
  Sex: Male
  Weight: 67 kg

DRUGS (4)
  1. ROACTEMRA [Suspect]
     Indication: RHEUMATOID ARTHRITIS
     Route: 042
     Dates: start: 20090610, end: 20130604
  2. SINTROM [Suspect]
     Indication: VENOUS THROMBOSIS
     Dosage: DEPENDING ON PTT/INR
     Route: 048
     Dates: end: 2006
  3. FOSAMAX [Concomitant]
     Indication: OSTEOPOROSIS
     Route: 048
     Dates: start: 2007
  4. DAFALGAN CODEINE [Concomitant]
     Indication: PAIN
     Route: 048

REACTIONS (2)
  - Hemiplegia [Recovered/Resolved with Sequelae]
  - Hepatic enzyme increased [Recovered/Resolved]
